FAERS Safety Report 23088716 (Version 1)
Quarter: 2023Q4

REPORT INFORMATION
  Report Type: Spontaneous
  Country: US (occurrence: US)
  Receive Date: 20231020
  Receipt Date: 20231020
  Transmission Date: 20240110
  Serious: Yes (Life-Threatening, Hospitalization)
  Sender: FDA-Public Use
  Company Number: US-MYLANLABS-2023M1108854

PATIENT
  Age: 64 Year
  Sex: Male

DRUGS (2)
  1. PREDNISONE [Suspect]
     Active Substance: PREDNISONE
     Indication: Rheumatoid arthritis
     Dosage: UNK
     Route: 065
  2. PREDNISONE [Suspect]
     Active Substance: PREDNISONE
     Indication: Immunosuppressant drug therapy

REACTIONS (10)
  - Pneumonia pneumococcal [Unknown]
  - Streptococcal endocarditis [Unknown]
  - Meningitis pneumococcal [Unknown]
  - Shock [Unknown]
  - Encephalopathy [Unknown]
  - Peripheral ischaemia [Unknown]
  - Septic embolus [Unknown]
  - Renal injury [Unknown]
  - Atrial fibrillation [Unknown]
  - Septic cerebral embolism [Unknown]
